FAERS Safety Report 21873385 (Version 3)
Quarter: 2023Q1

REPORT INFORMATION
  Report Type: Spontaneous
  Country: AT (occurrence: AT)
  Receive Date: 20230117
  Receipt Date: 20230314
  Transmission Date: 20230417
  Serious: Yes (Life-Threatening, Hospitalization, Other)
  Sender: FDA-Public Use
  Company Number: AT-STADA-266476

PATIENT
  Age: 20 Year
  Sex: Female

DRUGS (44)
  1. TOPAMAX [Suspect]
     Active Substance: TOPIRAMATE
     Indication: Borderline personality disorder
     Route: 048
  2. TOPAMAX [Suspect]
     Active Substance: TOPIRAMATE
     Indication: Major depression
  3. RISPERIDONE [Suspect]
     Active Substance: RISPERIDONE
     Indication: Borderline personality disorder
     Route: 048
  4. RISPERIDONE [Suspect]
     Active Substance: RISPERIDONE
     Indication: Major depression
  5. ARIPIPRAZOLE [Suspect]
     Active Substance: ARIPIPRAZOLE
     Indication: Borderline personality disorder
     Route: 065
  6. ARIPIPRAZOLE [Suspect]
     Active Substance: ARIPIPRAZOLE
     Indication: Major depression
  7. LITHIUM [Suspect]
     Active Substance: LITHIUM
     Indication: Borderline personality disorder
     Route: 065
  8. LITHIUM [Suspect]
     Active Substance: LITHIUM
     Indication: Major depression
  9. LORAZEPAM [Suspect]
     Active Substance: LORAZEPAM
     Indication: Borderline personality disorder
     Route: 065
  10. LORAZEPAM [Suspect]
     Active Substance: LORAZEPAM
     Indication: Anxiety
  11. LORAZEPAM [Suspect]
     Active Substance: LORAZEPAM
     Indication: Agitation
  12. LORAZEPAM [Suspect]
     Active Substance: LORAZEPAM
     Indication: Tension
  13. LORAZEPAM [Suspect]
     Active Substance: LORAZEPAM
     Indication: Major depression
  14. CLONAZEPAM [Suspect]
     Active Substance: CLONAZEPAM
     Indication: Borderline personality disorder
     Route: 065
  15. CLONAZEPAM [Suspect]
     Active Substance: CLONAZEPAM
     Indication: Sedation
     Route: 065
  16. CLONAZEPAM [Suspect]
     Active Substance: CLONAZEPAM
     Indication: Tension
  17. CLONAZEPAM [Suspect]
     Active Substance: CLONAZEPAM
     Indication: Suicide attempt
  18. CLONAZEPAM [Suspect]
     Active Substance: CLONAZEPAM
     Indication: Anxiety
  19. CLONAZEPAM [Suspect]
     Active Substance: CLONAZEPAM
     Indication: Agitation
  20. CLOMIPRAMINE [Suspect]
     Active Substance: CLOMIPRAMINE
     Indication: Borderline personality disorder
     Dosage: CLOMIPRAMINE (UP TO 225 MG P.O.Q.D.)?UNK [UP TO 225 MG PER ORAL EVERY DAY]
     Route: 048
  21. CLOMIPRAMINE [Suspect]
     Active Substance: CLOMIPRAMINE
     Indication: Major depression
  22. ESCITALOPRAM [Suspect]
     Active Substance: ESCITALOPRAM OXALATE
     Indication: Major depression
     Dosage: 30 MG, QD(RELATIVELY HIGH DOSE OF ESCITALOPRAM)
     Route: 048
  23. ESCITALOPRAM [Suspect]
     Active Substance: ESCITALOPRAM OXALATE
     Indication: Borderline personality disorder
  24. ESCITALOPRAM [Suspect]
     Active Substance: ESCITALOPRAM OXALATE
     Indication: Major depression
  25. QUETIAPINE [Suspect]
     Active Substance: QUETIAPINE
     Indication: Major depression
     Route: 065
  26. QUETIAPINE [Suspect]
     Active Substance: QUETIAPINE
     Indication: Borderline personality disorder
  27. DULOXETINE [Suspect]
     Active Substance: DULOXETINE
     Indication: Major depression
     Dosage: UNK 60-180 MG
     Route: 065
  28. TRAZODONE [Suspect]
     Active Substance: TRAZODONE HYDROCHLORIDE
     Indication: Major depression
     Dosage: 150 MG, 1D(RETARD PREPARATION EVERY DAY IN THE EVENING)
     Route: 048
  29. TRAZODONE [Suspect]
     Active Substance: TRAZODONE HYDROCHLORIDE
     Indication: Major depression
  30. BUPROPION [Suspect]
     Active Substance: BUPROPION
     Indication: Major depression
     Dosage: 150 MG, 1D(EXTENDED RELEASE)
     Route: 048
  31. BUPROPION [Suspect]
     Active Substance: BUPROPION
     Indication: Major depression
  32. ZOLPIDEM [Suspect]
     Active Substance: ZOLPIDEM TARTRATE
     Indication: Major depression
     Route: 065
  33. ZOLPIDEM [Suspect]
     Active Substance: ZOLPIDEM TARTRATE
     Indication: Major depression
  34. ESKETAMINE HYDROCHLORIDE [Suspect]
     Active Substance: ESKETAMINE HYDROCHLORIDE
     Indication: Suicide attempt
     Dosage: FIVE ESKETAMINE 25 OR 50 MG OVER 40-60 MIN
     Route: 042
  35. ESKETAMINE HYDROCHLORIDE [Suspect]
     Active Substance: ESKETAMINE HYDROCHLORIDE
     Indication: Toxicity to various agents
     Dosage: FIVE ESKETAMINE 25 OR 50 MG OVER 40-60 MIN
     Route: 042
  36. BUPROPION [Concomitant]
     Active Substance: BUPROPION
     Indication: Borderline personality disorder
     Dosage: EXTENDED RELEASE 150 MG P.O.Q.D.
     Route: 048
  37. DULOXETINE [Concomitant]
     Active Substance: DULOXETINE
     Indication: Borderline personality disorder
     Dosage: DULOXETINE 60-180 MG
     Route: 065
  38. ESCITALOPRAM [Concomitant]
     Active Substance: ESCITALOPRAM OXALATE
     Indication: Borderline personality disorder
     Dosage: HIGH DOSE OF ESCITALOPRAM 30MG DAILY
     Route: 048
  39. ZOLPIDEM [Concomitant]
     Active Substance: ZOLPIDEM TARTRATE
     Indication: Hallucinations, mixed
     Dosage: ZOLPIDEM 10 MG WAS ADMINISTERED ONLY ONCE
  40. TRAZODONE [Concomitant]
     Active Substance: TRAZODONE HYDROCHLORIDE
     Indication: Borderline personality disorder
     Dosage: TRAZODONE (RETARD PREPARATION) 150 MG P.O.Q.D.
     Route: 048
  41. ESKETAMINE [Concomitant]
     Active Substance: ESKETAMINE
     Indication: Borderline personality disorder
     Route: 042
  42. FLUOXETINE [Concomitant]
     Active Substance: FLUOXETINE HYDROCHLORIDE
  43. VENLAFAXINE [Concomitant]
     Active Substance: VENLAFAXINE HYDROCHLORIDE
  44. SERTRALINE [Concomitant]
     Active Substance: SERTRALINE HYDROCHLORIDE
     Indication: Major depression

REACTIONS (10)
  - Suicide attempt [Unknown]
  - Therapy non-responder [Unknown]
  - Vertigo [Unknown]
  - Agitation [Unknown]
  - Tremor [Unknown]
  - Suicidal behaviour [Recovered/Resolved]
  - Suicidal ideation [Recovering/Resolving]
  - Toxicity to various agents [Recovered/Resolved]
  - Off label use [Unknown]
  - Abnormal behaviour [Recovering/Resolving]
